FAERS Safety Report 9676302 (Version 2)
Quarter: 2014Q1

REPORT INFORMATION
  Report Type: Spontaneous
  Country: US (occurrence: US)
  Receive Date: 20131107
  Receipt Date: 20140203
  Transmission Date: 20141002
  Serious: Yes (Hospitalization)
  Sender: FDA-Public Use
  Company Number: US-B.I. PHARMACEUTICALS,INC./RIDGEFIELD-2013-BI-35438BP

PATIENT
  Sex: Male
  Weight: 81.65 kg

DRUGS (16)
  1. PRADAXA [Suspect]
     Indication: ATRIAL FIBRILLATION
     Dosage: 300 MG
     Dates: start: 20101222, end: 20111203
  2. AVODART [Concomitant]
     Indication: BENIGN PROSTATIC HYPERPLASIA
     Dosage: 0.5 MG
  3. DIGOXIN [Concomitant]
     Indication: ATRIAL FIBRILLATION
     Dosage: 0.125 MG
     Route: 048
  4. NORVASC [Concomitant]
     Indication: HYPERTENSION
     Dosage: 10 MG
     Route: 048
  5. LISINOPRIL [Concomitant]
     Indication: HYPERTENSION
     Dosage: 40 MG
     Route: 048
  6. METOPROLOL [Concomitant]
     Indication: HYPERTENSION
     Dosage: 200 MG
     Route: 048
  7. BABY ASPIRIN [Concomitant]
     Indication: CORONARY ARTERY DISEASE
     Dosage: 81 MG
     Route: 048
  8. CALTRATE [Concomitant]
     Route: 048
  9. HUMALOG [Concomitant]
     Route: 058
  10. HYDRALAZINE HCL [Concomitant]
     Indication: HYPERTENSION
     Dosage: 50 MG
     Route: 048
  11. LANTUS [Concomitant]
     Dosage: 20 U
     Route: 058
  12. MAGNESIUM [Concomitant]
     Indication: MAGNESIUM DEFICIENCY
     Dosage: 500 MG
     Route: 048
  13. PRAVASTATIN [Concomitant]
     Dosage: 40 MG
     Route: 048
  14. ROPINIROLE HCL [Concomitant]
     Indication: RESTLESS LEGS SYNDROME
     Route: 048
  15. CIPRO [Concomitant]
     Dosage: 1000 MG
  16. COLACE [Concomitant]
     Indication: CONSTIPATION

REACTIONS (2)
  - Upper gastrointestinal haemorrhage [Unknown]
  - Cerebellar haemorrhage [Unknown]
